FAERS Safety Report 7783501-8 (Version None)
Quarter: 2011Q3

REPORT INFORMATION
  Report Type: 
  Country: None (occurrence: None)
  Receive Date: 20110928
  Receipt Date: 20110131
  Transmission Date: 20111222
  Serious: No
  Sender: FDA-Public Use
  Company Number: US-MYLANLABS-2011S1000870

PATIENT
  Age: 68 Year
  Sex: Female

DRUGS (5)
  1. ATENOLOL [Concomitant]
     Indication: BLOOD PRESSURE INCREASED
     Route: 048
  2. ENALAPRIL MALEATE [Suspect]
     Indication: BLOOD PRESSURE INCREASED
     Route: 048
     Dates: start: 20100901, end: 20101001
  3. ALPRAZOLAM [Concomitant]
     Indication: INSOMNIA
     Route: 048
  4. ENALAPRIL MALEATE [Suspect]
     Route: 048
     Dates: start: 20101201, end: 20101201
  5. SYNTHROID [Concomitant]
     Indication: THYROID DISORDER
     Route: 048

REACTIONS (5)
  - MOOD ALTERED [None]
  - VERTIGO [None]
  - HEADACHE [None]
  - REACTION TO DRUG EXCIPIENTS [None]
  - ABDOMINAL DISCOMFORT [None]
